FAERS Safety Report 8044974 (Version 7)
Quarter: 2014Q3

REPORT INFORMATION
  Report Type: Report from Study
  Country: JP (occurrence: JP)
  Receive Date: 20110720
  Receipt Date: 20140714
  Transmission Date: 20150326
  Serious: Yes (Hospitalization)
  Sender: FDA-Public Use
  Company Number: JP-SANOFI-AVENTIS-2011SA045566

PATIENT
  Age: 61 Year
  Sex: Female
  Weight: 75 kg

DRUGS (11)
  1. LEFLUNOMIDE. [Suspect]
     Active Substance: LEFLUNOMIDE
     Indication: RHEUMATOID ARTHRITIS
     Route: 048
     Dates: end: 20110110
  2. PREDONINE [Concomitant]
     Active Substance: PREDNISOLONE\PREDNISOLONE ACETATE\PREDNISOLONE SODIUM SUCCINATE
     Indication: RHEUMATOID ARTHRITIS
     Route: 048
     Dates: start: 20110512
  3. CELECOXIB. [Concomitant]
     Active Substance: CELECOXIB
     Indication: RHEUMATOID ARTHRITIS
     Dosage: IT WAS STARTED BEFORE THE ADMINISTRATION OF LEFLUNOMIDE.
     Route: 048
     Dates: end: 20110110
  4. LEFLUNOMIDE. [Suspect]
     Active Substance: LEFLUNOMIDE
     Indication: RHEUMATOID ARTHRITIS
     Route: 048
     Dates: start: 20101005, end: 20101207
  5. RHEUMATREX [Concomitant]
     Active Substance: METHOTREXATE SODIUM
     Indication: RHEUMATOID ARTHRITIS
     Route: 048
     Dates: start: 20101102, end: 20110110
  6. VOLTAREN [Concomitant]
     Active Substance: DICLOFENAC SODIUM
     Indication: RHEUMATOID ARTHRITIS
     Dosage: IT WAS STARTED BEFORE THE ADMINISTRATION OF LEFLUNOMIDE.?TAPE
     Route: 062
     Dates: end: 20110110
  7. PREDONINE [Concomitant]
     Active Substance: PREDNISOLONE\PREDNISOLONE ACETATE\PREDNISOLONE SODIUM SUCCINATE
     Indication: RHEUMATOID ARTHRITIS
     Dates: start: 20110804
  8. RHEUMATREX [Concomitant]
     Active Substance: METHOTREXATE SODIUM
     Indication: RHEUMATOID ARTHRITIS
     Dosage: IT WAS STARTED BEFORE THE ADMINISTRATION OF LEFLUNOMIDE.
     Route: 048
     Dates: end: 20101101
  9. FOLIAMIN [Concomitant]
     Active Substance: FOLIC ACID
     Indication: PROPHYLAXIS
     Dosage: IT WAS STARTED BEFORE THE ADMINISTRATION OF LEFLUNOMIDE.
     Route: 048
     Dates: end: 20110110
  10. PREDONINE [Concomitant]
     Active Substance: PREDNISOLONE\PREDNISOLONE ACETATE\PREDNISOLONE SODIUM SUCCINATE
     Indication: RHEUMATOID ARTHRITIS
     Route: 048
  11. REBAMIPIDE [Concomitant]
     Active Substance: REBAMIPIDE
     Indication: RHEUMATOID ARTHRITIS
     Dosage: IT WAS STARTED BEFORE THE ADMINISTRATION OF LEFLUNOMIDE.
     Route: 048
     Dates: end: 20110110

REACTIONS (15)
  - Blood bilirubin increased [Recovered/Resolved]
  - Alanine aminotransferase increased [Recovered/Resolved]
  - Ocular icterus [Recovered/Resolved]
  - Bilirubin conjugated increased [Recovered/Resolved]
  - Aspartate aminotransferase increased [Recovered/Resolved]
  - Blood alkaline phosphatase increased [Recovered/Resolved]
  - Hepatitis B [Recovered/Resolved]
  - Ammonia increased [Recovered/Resolved]
  - Hepatitis B DNA increased [Recovered/Resolved]
  - C-reactive protein increased [Recovered/Resolved]
  - Prothrombin level decreased [Recovered/Resolved]
  - Malaise [Recovered/Resolved]
  - Hepatitis B surface antigen positive [Recovered/Resolved]
  - Gamma-glutamyltransferase increased [Recovered/Resolved]
  - Decreased appetite [Recovered/Resolved]

NARRATIVE: CASE EVENT DATE: 20110111
